FAERS Safety Report 5368015-7 (Version None)
Quarter: 2007Q2

REPORT INFORMATION
  Report Type: 
  Country: None (occurrence: None)
  Receive Date: 20070622
  Receipt Date: 20070612
  Transmission Date: 20071010
  Serious: Yes (Hospitalization, Disabling)
  Sender: FDA-Public Use
  Company Number: GB-PFIZER INC-2007048524

PATIENT
  Age: 46 Year
  Sex: Male

DRUGS (3)
  1. LYRICA [Suspect]
     Indication: EPILEPSY
     Route: 048
     Dates: start: 20061208, end: 20070521
  2. LAMOTRIGINE [Concomitant]
     Indication: EPILEPSY
  3. TOPIRAMATE [Concomitant]
     Indication: EPILEPSY

REACTIONS (6)
  - AGGRESSION [None]
  - CONDITION AGGRAVATED [None]
  - DEPRESSED MOOD [None]
  - DIZZINESS [None]
  - PARTIAL SEIZURES [None]
  - POSTICTAL STATE [None]
